FAERS Safety Report 10062301 (Version 1)
Quarter: 2014Q2

REPORT INFORMATION
  Report Type: Spontaneous
  Country: US (occurrence: US)
  Receive Date: 20140407
  Receipt Date: 20140407
  Transmission Date: 20141212
  Serious: No
  Sender: FDA-Public Use
  Company Number: US-GLAXOSMITHKLINE-A1056003A

PATIENT
  Age: 57 Year
  Sex: Female
  Weight: 99.5 kg

DRUGS (2)
  1. BENLYSTA [Suspect]
     Indication: BRONCHITIS
     Route: 042
     Dates: start: 2011
  2. UNKNOWN [Concomitant]

REACTIONS (2)
  - Nausea [Recovered/Resolved]
  - Vomiting [Recovered/Resolved]
